FAERS Safety Report 9407958 (Version 1)
Quarter: 2013Q3

REPORT INFORMATION
  Report Type: Spontaneous
  Country: JP (occurrence: JP)
  Receive Date: 20130718
  Receipt Date: 20130718
  Transmission Date: 20140515
  Serious: Yes (Hospitalization)
  Sender: FDA-Public Use
  Company Number: JP-JNJFOC-20130703050

PATIENT
  Age: 57 Year
  Sex: Female

DRUGS (12)
  1. SIMPONI [Suspect]
     Indication: RHEUMATOID ARTHRITIS
     Dosage: 9 TIMES
     Route: 058
     Dates: start: 20120927, end: 20130509
  2. RHEUMATREX [Concomitant]
     Route: 048
  3. RHEUMATREX [Concomitant]
     Route: 048
  4. PREDNISOLONE [Concomitant]
     Route: 048
  5. PREDNISOLONE [Concomitant]
     Route: 048
  6. CELECOX [Concomitant]
     Route: 048
  7. FOLIAMIN [Concomitant]
     Route: 048
  8. BROTIZOLAM [Concomitant]
     Route: 048
  9. REBAMIPIDE [Concomitant]
     Route: 048
  10. TAKEPRON [Concomitant]
     Route: 048
  11. ASPARA-CA [Concomitant]
     Route: 048
  12. EDIROL [Concomitant]
     Route: 048

REACTIONS (1)
  - Rheumatoid vasculitis [Not Recovered/Not Resolved]
